FAERS Safety Report 4693157-9 (Version None)
Quarter: 2005Q2

REPORT INFORMATION
  Report Type: 
  Country: None (occurrence: None)
  Receive Date: 20050617
  Receipt Date: 20050606
  Transmission Date: 20051028
  Serious: Yes (Hospitalization)
  Sender: FDA-Public Use
  Company Number: DE-JNJFOC-20050601927

PATIENT
  Age: 34 Year
  Sex: Female

DRUGS (3)
  1. HALDOL [Suspect]
     Indication: SCHIZOPHRENIA
     Dates: start: 20041201
  2. ABILIFY [Concomitant]
     Dates: start: 20050301
  3. TAVOR [Concomitant]
     Dates: start: 20050301

REACTIONS (1)
  - SUICIDE ATTEMPT [None]
